FAERS Safety Report 4677490-2 (Version None)
Quarter: 2005Q2

REPORT INFORMATION
  Report Type: 
  Country: None (occurrence: None)
  Receive Date: 20050531
  Receipt Date: 20041102
  Transmission Date: 20051028
  Serious: Yes (Other)
  Sender: FDA-Public Use
  Company Number: PHEH2004US11828

PATIENT
  Age: 77 Year
  Sex: Male

DRUGS (15)
  1. ANAESTHETICS [Concomitant]
  2. ZOMETA [Suspect]
     Indication: MULTIPLE MYELOMA
     Dosage: 4 MG, QMO
     Dates: start: 20030123, end: 20040304
  3. DOXIL [Concomitant]
     Dates: start: 20030626, end: 20030918
  4. VINCRISTINE [Concomitant]
     Dates: start: 20030626, end: 20030918
  5. NEULASTA [Concomitant]
     Dates: start: 20030725, end: 20030822
  6. DEXAMETHASONE [Concomitant]
     Dates: start: 20030523
  7. PREDNISONE [Concomitant]
     Dosage: UNK, QOD
     Dates: end: 20040601
  8. ATENOLOL [Concomitant]
     Dosage: 100 MG, QD
     Route: 048
  9. PRILOSEC [Concomitant]
     Dosage: 20 MG, QD
     Route: 048
  10. LISINOPRIL [Concomitant]
     Dosage: 20 MG, QD
     Route: 048
  11. TIMOLOL MALEATE [Concomitant]
     Dosage: .5 %, QD
  12. PLENDIL [Concomitant]
     Dosage: 10 MG, QD
     Route: 048
  13. TAMSULOSIN HCL [Concomitant]
     Dosage: 24 MG, QD
  14. POLYATRA-K [Concomitant]
     Dosage: 2 TBS/ QD
  15. AREDIA [Suspect]
     Indication: MULTIPLE MYELOMA
     Dosage: 90 MG, QMO
     Dates: start: 20040402, end: 20040901

REACTIONS (11)
  - BONE DISORDER [None]
  - ENDODONTIC PROCEDURE [None]
  - GINGIVAL ATROPHY [None]
  - GINGIVAL INJURY [None]
  - GINGIVAL SWELLING [None]
  - INFECTION [None]
  - ORAL DISCOMFORT [None]
  - OSTEOMYELITIS ACUTE [None]
  - OSTEONECROSIS [None]
  - SEQUESTRECTOMY [None]
  - TOOTH EXTRACTION [None]
